FAERS Safety Report 22244389 (Version 2)
Quarter: 2023Q2

REPORT INFORMATION
  Report Type: Report from Study
  Country: US (occurrence: US)
  Receive Date: 20230424
  Receipt Date: 20230427
  Transmission Date: 20230721
  Serious: No
  Sender: FDA-Public Use
  Company Number: US-002147023-NVSC2023US092253

PATIENT
  Sex: Female
  Weight: 92.99 kg

DRUGS (1)
  1. ENTRESTO [Suspect]
     Active Substance: SACUBITRIL\VALSARTAN
     Indication: Cardiac failure congestive
     Dosage: 97103 MG, BID
     Route: 048
     Dates: start: 2021

REACTIONS (1)
  - Cough [Not Recovered/Not Resolved]
